FAERS Safety Report 6148568-1 (Version None)
Quarter: 2009Q2

REPORT INFORMATION
  Report Type: 
  Country: None (occurrence: None)
  Receive Date: 20090408
  Receipt Date: 20090330
  Transmission Date: 20091009
  Serious: Yes (Other)
  Sender: FDA-Public Use
  Company Number: PHHY2009JP12397

PATIENT
  Age: 68 Year
  Sex: Female

DRUGS (1)
  1. COMTAN [Suspect]
     Route: 048

REACTIONS (4)
  - CONFUSIONAL STATE [None]
  - DELUSION [None]
  - HALLUCINATION [None]
  - RESTLESSNESS [None]
